FAERS Safety Report 4346388-1 (Version None)
Quarter: 2004Q2

REPORT INFORMATION
  Report Type: 
  Country: None (occurrence: None)
  Receive Date: 20040426
  Receipt Date: 20031006
  Transmission Date: 20050107
  Serious: No
  Sender: FDA-Public Use
  Company Number: US-GLAXOSMITHKLINE-A0428986A

PATIENT
  Age: 37 Year
  Sex: Female

DRUGS (2)
  1. ZOFRAN [Suspect]
     Indication: NAUSEA
     Dosage: .5TAB TWICE PER DAY
     Route: 048
     Dates: start: 20030801
  2. NONE [Concomitant]

REACTIONS (2)
  - CONSTIPATION [None]
  - DRUG EXPOSURE DURING PREGNANCY [None]
